FAERS Safety Report 4549133-X (Version None)
Quarter: 2004Q4

REPORT INFORMATION
  Report Type: 
  Country: None (occurrence: None)
  Receive Date: 20041227
  Receipt Date: 20041018
  Transmission Date: 20050328
  Serious: No
  Sender: FDA-Public Use
  Company Number: 04P-163-0271498-00

PATIENT
  Age: 65 Year
  Sex: Female
  Weight: 57.6068 kg

DRUGS (7)
  1. HUMIRA [Suspect]
     Indication: RHEUMATOID ARTHRITIS
     Dosage: 40 MG, 1 IN 2 WK, SUBCUTANEOUS
     Route: 058
     Dates: start: 20030101, end: 20030101
  2. HUMIRA [Suspect]
     Indication: RHEUMATOID ARTHRITIS
     Dosage: 40 MG, 1 IN 2 WK, SUBCUTANEOUS
     Route: 058
     Dates: start: 20040820, end: 20041008
  3. PREDNISONE [Concomitant]
  4. IBUPROFEN [Concomitant]
  5. HYDROCODONE [Concomitant]
  6. CALCIUM GLUCONATE [Concomitant]
  7. CENTRUM [Concomitant]

REACTIONS (7)
  - DIARRHOEA [None]
  - DRUG INEFFECTIVE [None]
  - HEADACHE [None]
  - HOT FLUSH [None]
  - INSOMNIA [None]
  - NASAL SINUS DRAINAGE [None]
  - NAUSEA [None]
